FAERS Safety Report 17408596 (Version 1)
Quarter: 2020Q1

REPORT INFORMATION
  Report Type: Report from Study
  Country: CO (occurrence: CO)
  Receive Date: 20200212
  Receipt Date: 20200212
  Transmission Date: 20200409
  Serious: Yes (Hospitalization)
  Sender: FDA-Public Use
  Company Number: CO-JNJFOC-20191235838

PATIENT
  Weight: 68 kg

DRUGS (2)
  1. CARBAMAZEPINE. [Concomitant]
     Active Substance: CARBAMAZEPINE
     Route: 048
  2. INVEGA SUSTENNA [Suspect]
     Active Substance: PALIPERIDONE PALMITATE
     Indication: SCHIZOPHRENIA
     Route: 030
     Dates: start: 20151001

REACTIONS (6)
  - Fall [Unknown]
  - Skull fracture [Unknown]
  - Dizziness [Unknown]
  - Hospitalisation [Unknown]
  - Schizophrenia [Unknown]
  - Balance disorder [Unknown]
